FAERS Safety Report 5423849-5 (Version None)
Quarter: 2007Q3

REPORT INFORMATION
  Report Type: 
  Country: None (occurrence: None)
  Receive Date: 20070727
  Receipt Date: 20070417
  Transmission Date: 20080115
  Serious: No
  Sender: FDA-Public Use
  Company Number: 262805

PATIENT
  Age: 53 Year
  Sex: Female
  Weight: 105 kg

DRUGS (2)
  1. LEVEMIR [Suspect]
     Indication: DIABETES MELLITUS
     Dosage: 10 IU, QD, SUBCUTANEOUS,12 IU,QD, 14 IU,QD, 16 IU, QD
     Route: 058
     Dates: end: 20070405
  2. LEVEMIR [Suspect]
     Indication: DIABETES MELLITUS
     Dosage: 10 IU, QD, SUBCUTANEOUS,12 IU,QD, 14 IU,QD, 16 IU, QD
     Route: 058
     Dates: start: 20070314

REACTIONS (4)
  - INJECTION SITE MASS [None]
  - INJECTION SITE PRURITUS [None]
  - INJECTION SITE SWELLING [None]
  - URTICARIA [None]
